FAERS Safety Report 4570299-X (Version None)
Quarter: 2005Q1

REPORT INFORMATION
  Report Type: 
  Country: None (occurrence: None)
  Receive Date: 20050204
  Receipt Date: 20050125
  Transmission Date: 20050727
  Serious: Yes (Hospitalization)
  Sender: FDA-Public Use
  Company Number: SEWYE372126JAN05

PATIENT
  Sex: Male

DRUGS (4)
  1. ENBREL [Suspect]
     Indication: ANKYLOSING SPONDYLITIS
     Dosage: ONLY ONE DOSE OF ENBREL 25 MG WAS GIVEN
     Route: 058
     Dates: start: 20040719, end: 20040719
  2. NORVASC [Concomitant]
  3. RENITEC [Concomitant]
  4. INSULIN HUMAN [Concomitant]

REACTIONS (1)
  - HYPOGLYCAEMIA [None]
